FAERS Safety Report 15571857 (Version 1)
Quarter: 2018Q4

REPORT INFORMATION
  Report Type: Report from Study
  Country: FR (occurrence: FR)
  Receive Date: 20181031
  Receipt Date: 20181031
  Transmission Date: 20190205
  Serious: Yes (Death, Hospitalization, Other)
  Sender: FDA-Public Use
  Company Number: FR-JAZZ-2018-FR-014637

PATIENT

DRUGS (2)
  1. DEFITELIO [Suspect]
     Active Substance: DEFIBROTIDE SODIUM
     Indication: PROPHYLAXIS
     Dosage: 10 MG/KG/DAY
     Route: 042
     Dates: start: 20180531, end: 2018
  2. DEFITELIO [Suspect]
     Active Substance: DEFIBROTIDE SODIUM
     Indication: VENOOCCLUSIVE DISEASE
     Dosage: 25 MG/KG/DAY
     Dates: start: 2018, end: 20180612

REACTIONS (14)
  - Rectal haemorrhage [Unknown]
  - Bladder hypertrophy [Unknown]
  - Acute pulmonary oedema [Fatal]
  - Pancytopenia [Unknown]
  - Pulmonary toxicity [Fatal]
  - Graft versus host disease in skin [Fatal]
  - Enterocolitis [Unknown]
  - Oedema [Unknown]
  - Multiple organ dysfunction syndrome [Fatal]
  - Cryptosporidiosis infection [Unknown]
  - Weight decreased [Unknown]
  - Visual field defect [Unknown]
  - Graft versus host disease in gastrointestinal tract [Fatal]
  - Liver disorder [Unknown]

NARRATIVE: CASE EVENT DATE: 2018
